FAERS Safety Report 4426720-0 (Version None)
Quarter: 2004Q3

REPORT INFORMATION
  Report Type: 
  Country: None (occurrence: None)
  Receive Date: 20040816
  Receipt Date: 20040806
  Transmission Date: 20050211
  Serious: Yes (Other)
  Sender: FDA-Public Use
  Company Number: US-JNJFOC-20040701869

PATIENT
  Sex: Female
  Weight: 120.2 kg

DRUGS (7)
  1. TOPAMAX [Suspect]
     Route: 049
     Dates: start: 20020301, end: 20040501
  2. TEGRETOL [Concomitant]
  3. VIOXX [Concomitant]
  4. SYNTHROID [Concomitant]
  5. KLONIPIN [Concomitant]
  6. ROBAXIN [Concomitant]
  7. DETROL LA [Concomitant]

REACTIONS (9)
  - ANHIDROSIS [None]
  - BALANCE DISORDER [None]
  - CATARACT [None]
  - COUGH [None]
  - GASTROOESOPHAGEAL REFLUX DISEASE [None]
  - HEAT STROKE [None]
  - LOCALISED OSTEOARTHRITIS [None]
  - MOOD SWINGS [None]
  - WEIGHT INCREASED [None]
